FAERS Safety Report 7967835-X (Version None)
Quarter: 2011Q4

REPORT INFORMATION
  Report Type: 
  Country: None (occurrence: None)
  Receive Date: 20111209
  Receipt Date: 20111129
  Transmission Date: 20120403
  Serious: Yes (Other)
  Sender: FDA-Public Use
  Company Number: MX-SANOFI-AVENTIS-2011SA078738

PATIENT
  Age: 55 Year
  Sex: Female
  Weight: 78 kg

DRUGS (3)
  1. LANTUS [Suspect]
     Route: 058
     Dates: start: 20100101
  2. LANTUS [Suspect]
     Indication: TYPE 2 DIABETES MELLITUS
     Route: 058
     Dates: start: 20060101, end: 20100101
  3. SELOPRES ZOK [Concomitant]
     Route: 048
     Dates: start: 20010101

REACTIONS (6)
  - BACK PAIN [None]
  - INSOMNIA [None]
  - BONE FISSURE [None]
  - HYPERGLYCAEMIA [None]
  - RIB FRACTURE [None]
  - FALL [None]
